FAERS Safety Report 22142203 (Version 3)
Quarter: 2023Q2

REPORT INFORMATION
  Report Type: Report from Study
  Country: CN (occurrence: CN)
  Receive Date: 20230327
  Receipt Date: 20230529
  Transmission Date: 20230721
  Serious: Yes (Hospitalization)
  Sender: FDA-Public Use
  Company Number: CN-PFIZER INC-PV202300053986

PATIENT
  Age: 72 Year
  Sex: Female

DRUGS (41)
  1. PACLITAXEL [Suspect]
     Active Substance: PACLITAXEL
     Indication: Triple negative breast cancer
     Dosage: 103.2 MG, WEEK, FORMULATION: INFUSION
     Route: 042
     Dates: start: 20230110, end: 20230110
  2. PACLITAXEL [Suspect]
     Active Substance: PACLITAXEL
     Dosage: 103.2 MG, WEEK, FORMULATION: INFUSION
     Route: 042
     Dates: start: 20230118, end: 20230118
  3. PACLITAXEL [Suspect]
     Active Substance: PACLITAXEL
     Dosage: 103.2 MG, WEEK, FORMULATION: INFUSION
     Route: 042
     Dates: start: 20230202, end: 20230202
  4. PACLITAXEL [Suspect]
     Active Substance: PACLITAXEL
     Dosage: 102.4 MG, WEEK, FORMULATION: INFUSION
     Route: 042
     Dates: start: 20230217, end: 20230217
  5. PACLITAXEL [Suspect]
     Active Substance: PACLITAXEL
     Dosage: 102.4 MG, WEEK, FORMULATION: INFUSION
     Route: 042
     Dates: start: 20230224, end: 20230224
  6. PACLITAXEL [Suspect]
     Active Substance: PACLITAXEL
     Dosage: 102.4 MG, WEEK, FORMULATION: INFUSION
     Route: 042
     Dates: start: 20230309, end: 20230309
  7. PACLITAXEL [Suspect]
     Active Substance: PACLITAXEL
     Dosage: 100  MG, WEEK, FORMULATION: INFUSION
     Route: 042
     Dates: start: 20230411, end: 20230411
  8. INVESTIGATIONAL PRODUCT [Suspect]
     Active Substance: INVESTIGATIONAL PRODUCT
     Indication: Triple negative breast cancer
     Dosage: ORAL FORMULATION: TABLET, 2X/DAY
     Route: 048
     Dates: start: 20230111, end: 20230114
  9. INVESTIGATIONAL PRODUCT [Suspect]
     Active Substance: INVESTIGATIONAL PRODUCT
     Dosage: ORAL FORMULATION: TABLET, 2X/DAY
     Route: 048
     Dates: start: 20230119, end: 20230122
  10. INVESTIGATIONAL PRODUCT [Suspect]
     Active Substance: INVESTIGATIONAL PRODUCT
     Dosage: ORAL FORMULATION: TABLET, 2X/DAY
     Route: 048
     Dates: start: 20230203, end: 20230206
  11. INVESTIGATIONAL PRODUCT [Suspect]
     Active Substance: INVESTIGATIONAL PRODUCT
     Dosage: ORAL FORMULATION: TABLET, 2X/DAY
     Route: 048
     Dates: start: 20230218, end: 20230221
  12. INVESTIGATIONAL PRODUCT [Suspect]
     Active Substance: INVESTIGATIONAL PRODUCT
     Dosage: ORAL FORMULATION: TABLET, 2X/DAY
     Route: 048
     Dates: start: 20230225, end: 20230228
  13. INVESTIGATIONAL PRODUCT [Suspect]
     Active Substance: INVESTIGATIONAL PRODUCT
     Dosage: ORAL FORMULATION: TABLET, 2X/DAY
     Route: 048
     Dates: start: 20230310, end: 20230313
  14. DEXAMETHASONE SODIUM PHOSPHATE [Concomitant]
     Active Substance: DEXAMETHASONE SODIUM PHOSPHATE
     Indication: Prophylaxis
     Dosage: 10 MG, ONCE
     Route: 042
     Dates: start: 20230202, end: 20230202
  15. DEXAMETHASONE SODIUM PHOSPHATE [Concomitant]
     Active Substance: DEXAMETHASONE SODIUM PHOSPHATE
     Dosage: 10 MG, ONCE
     Route: 042
     Dates: start: 20230217, end: 20230217
  16. DEXAMETHASONE SODIUM PHOSPHATE [Concomitant]
     Active Substance: DEXAMETHASONE SODIUM PHOSPHATE
     Dosage: 10 MG, ONCE
     Route: 042
     Dates: start: 20230224, end: 20230224
  17. PROMETHAZINE HYDROCHLORIDE [Concomitant]
     Active Substance: PROMETHAZINE HYDROCHLORIDE
     Indication: Prophylaxis
     Dosage: 25 MG, ONCE
     Route: 030
     Dates: start: 20230202, end: 20230202
  18. PROMETHAZINE HYDROCHLORIDE [Concomitant]
     Active Substance: PROMETHAZINE HYDROCHLORIDE
     Dosage: 25 MG, ONCE
     Route: 030
     Dates: start: 20230217, end: 20230217
  19. PROMETHAZINE HYDROCHLORIDE [Concomitant]
     Active Substance: PROMETHAZINE HYDROCHLORIDE
     Dosage: 25 MG, ONCE
     Route: 030
     Dates: start: 20230224, end: 20230224
  20. CIMETIDINE [Concomitant]
     Active Substance: CIMETIDINE
     Indication: Prophylaxis
     Dosage: 2 G, ONCE
     Route: 042
     Dates: start: 20230202, end: 20230202
  21. CIMETIDINE [Concomitant]
     Active Substance: CIMETIDINE
     Dosage: 2 G, ONCE
     Route: 042
     Dates: start: 20230217, end: 20230217
  22. CIMETIDINE [Concomitant]
     Active Substance: CIMETIDINE
     Dosage: 2 G, ONCE
     Route: 042
     Dates: start: 20230224, end: 20230224
  23. CIMETIDINE [Concomitant]
     Active Substance: CIMETIDINE
     Dosage: 3  G, ONCE
     Route: 042
     Dates: start: 20230303, end: 20230310
  24. ONDANSETRON HYDROCHLORIDE [Concomitant]
     Active Substance: ONDANSETRON HYDROCHLORIDE
     Indication: Prophylaxis of nausea and vomiting
     Dosage: 8 MG, SINGLE
     Route: 042
     Dates: start: 20230202, end: 20230202
  25. VITAMIN C [Concomitant]
     Active Substance: ASCORBIC ACID
     Indication: Nutritional supplementation
     Dosage: 3 G, DAILY
     Route: 042
     Dates: start: 20230127
  26. VITAMIN C [Concomitant]
     Active Substance: ASCORBIC ACID
     Dosage: 2 G, DAILY
     Route: 042
     Dates: start: 20230303, end: 20230310
  27. POTASSIUM CHLORIDE [Concomitant]
     Active Substance: POTASSIUM CHLORIDE
     Indication: Nutritional supplementation
     Dosage: 1.5 G, DAILY
     Route: 042
     Dates: start: 20230127
  28. POTASSIUM CHLORIDE [Concomitant]
     Active Substance: POTASSIUM CHLORIDE
     Dosage: 1.5 G, DAILY
     Route: 042
     Dates: start: 20230303, end: 20230310
  29. POTASSIUM CHLORIDE [Concomitant]
     Active Substance: POTASSIUM CHLORIDE
     Indication: Mineral supplementation
     Dosage: UNK
     Route: 048
     Dates: start: 20230118
  30. POTASSIUM PHOSPHATE, DIBASIC\POTASSIUM PHOSPHATE, MONOBASIC [Concomitant]
     Active Substance: POTASSIUM PHOSPHATE, DIBASIC\POTASSIUM PHOSPHATE, MONOBASIC
     Dosage: 2 ML, SINGLE
     Route: 042
     Dates: start: 20230201, end: 20230201
  31. POTASSIUM PHOSPHATE, DIBASIC\POTASSIUM PHOSPHATE, MONOBASIC [Concomitant]
     Active Substance: POTASSIUM PHOSPHATE, DIBASIC\POTASSIUM PHOSPHATE, MONOBASIC
     Dosage: 2 ML, SINGLE
     Route: 042
     Dates: start: 20230202, end: 20230202
  32. POTASSIUM PHOSPHATE, DIBASIC\POTASSIUM PHOSPHATE, MONOBASIC [Concomitant]
     Active Substance: POTASSIUM PHOSPHATE, DIBASIC\POTASSIUM PHOSPHATE, MONOBASIC
     Dosage: 2 ML, SINGLE
     Route: 042
     Dates: start: 20230206, end: 20230206
  33. POTASSIUM PHOSPHATE, DIBASIC\POTASSIUM PHOSPHATE, MONOBASIC [Concomitant]
     Active Substance: POTASSIUM PHOSPHATE, DIBASIC\POTASSIUM PHOSPHATE, MONOBASIC
     Dosage: 2 ML, SINGLE
     Route: 042
     Dates: start: 20230303, end: 20230310
  34. PALONOSETRON HYDROCHLORIDE [Concomitant]
     Active Substance: PALONOSETRON HYDROCHLORIDE
     Indication: Prophylaxis
     Dosage: 10 MG, ONCE
     Route: 042
     Dates: start: 20230217, end: 20230217
  35. PALONOSETRON HYDROCHLORIDE [Concomitant]
     Active Substance: PALONOSETRON HYDROCHLORIDE
     Dosage: 25 MG, ONCE
     Route: 042
     Dates: start: 20230224, end: 20230224
  36. VITAMIN B6 [Concomitant]
     Active Substance: PYRIDOXINE HYDROCHLORIDE
     Indication: Nutritional supplementation
     Dosage: 2 G, DAILY
     Route: 042
     Dates: start: 20230127
  37. VITAMIN B6 [Concomitant]
     Active Substance: PYRIDOXINE HYDROCHLORIDE
     Dosage: 2 G, DAILY
     Route: 042
     Dates: start: 20230303, end: 20230310
  38. LOPERAMIDE HYDROCHLORIDE [Concomitant]
     Active Substance: LOPERAMIDE HYDROCHLORIDE
     Indication: Supplementation therapy
     Dosage: 2 DF, ONCE
     Route: 048
     Dates: start: 20230205, end: 20230205
  39. LOPERAMIDE HYDROCHLORIDE [Concomitant]
     Active Substance: LOPERAMIDE HYDROCHLORIDE
     Dosage: 2 DF, ONCE
     Route: 048
     Dates: start: 20230206, end: 20230208
  40. LOPERAMIDE HYDROCHLORIDE [Concomitant]
     Active Substance: LOPERAMIDE HYDROCHLORIDE
     Dosage: 2 DF, ONCE
     Route: 048
     Dates: start: 20230220, end: 20230221
  41. GRANULOCYTE COLONY-STIMULATING FACTOR NOS [Concomitant]
     Active Substance: GRANULOCYTE COLONY-STIMULATING FACTOR NOS
     Indication: Leukopenia
     Dosage: 300 UG, ONCE
     Route: 058
     Dates: start: 20230303, end: 20230303

REACTIONS (2)
  - Electrolyte imbalance [Recovered/Resolved]
  - Myelosuppression [Recovered/Resolved]

NARRATIVE: CASE EVENT DATE: 20230303
